FAERS Safety Report 8524094-7 (Version None)
Quarter: 2012Q3

REPORT INFORMATION
  Report Type: 
  Country: None (occurrence: None)
  Receive Date: 20120720
  Receipt Date: 20120712
  Transmission Date: 20120928
  Serious: Yes (Hospitalization)
  Sender: FDA-Public Use
  Company Number: US-JNJFOC-20120605617

PATIENT
  Age: 74 Year
  Sex: Female
  Weight: 74 kg

DRUGS (1)
  1. XARELTO [Suspect]
     Indication: ATRIAL FIBRILLATION
     Route: 048
     Dates: start: 20120127, end: 20120129

REACTIONS (3)
  - PRESYNCOPE [None]
  - GASTROINTESTINAL HAEMORRHAGE [None]
  - ATRIAL FIBRILLATION [None]
